FAERS Safety Report 8688191 (Version 3)
Quarter: 2014Q3

REPORT INFORMATION
  Report Type: Report from Study
  Country: US (occurrence: US)
  Receive Date: 20120727
  Receipt Date: 20140822
  Transmission Date: 20150326
  Serious: Yes (Death, Other)
  Sender: FDA-Public Use
  Company Number: US-ROCHE-1092308

PATIENT
  Age: 56 Year
  Sex: Male

DRUGS (2)
  1. COPEGUS [Suspect]
     Active Substance: RIBAVIRIN
     Indication: CHRONIC HEPATITIS C
     Route: 048
     Dates: start: 20111028, end: 20120109
  2. PEGASYS [Suspect]
     Active Substance: PEGINTERFERON ALFA-2A
     Indication: CHRONIC HEPATITIS C
     Dosage: FROM STRENGTH: 180MCG/0.5ML
     Route: 065
     Dates: start: 20111028, end: 20120109

REACTIONS (7)
  - Varices oesophageal [Fatal]
  - Oesophageal varices haemorrhage [Fatal]
  - Hepatic cirrhosis [Fatal]
  - Hypovolaemic shock [Fatal]
  - Portal hypertension [Fatal]
  - Upper gastrointestinal haemorrhage [Fatal]
  - Death [Fatal]

NARRATIVE: CASE EVENT DATE: 20120109
